FAERS Safety Report 21636919 (Version 1)
Quarter: 2022Q4

REPORT INFORMATION
  Report Type: Spontaneous
  Country: US (occurrence: US)
  Receive Date: 20221124
  Receipt Date: 20221124
  Transmission Date: 20230112
  Serious: Yes (Hospitalization, Other)
  Sender: FDA-Public Use
  Company Number: US-SUN PHARMACEUTICAL INDUSTRIES LTD-2022R1-364121

PATIENT
  Age: 49 Year
  Sex: Female

DRUGS (1)
  1. ASPIRIN [Suspect]
     Active Substance: ASPIRIN
     Indication: Product used for unknown indication
     Dosage: 325 MILLIGRAM, BID
     Route: 065

REACTIONS (4)
  - Sinus tachycardia [Unknown]
  - Pulmonary embolism [Unknown]
  - Intracardiac thrombus [Recovered/Resolved]
  - Deep vein thrombosis [Unknown]
